FAERS Safety Report 9208370 (Version 2)
Quarter: 2013Q2

REPORT INFORMATION
  Report Type: Spontaneous
  Country: US (occurrence: US)
  Receive Date: 20130404
  Receipt Date: 20130422
  Transmission Date: 20140414
  Serious: Yes (Other)
  Sender: FDA-Public Use
  Company Number: US-BIOGENIDEC-2013BI029166

PATIENT
  Sex: Female
  Weight: 139 kg

DRUGS (3)
  1. TYSABRI [Suspect]
     Indication: MULTIPLE SCLEROSIS
     Route: 042
     Dates: start: 20090420
  2. GABAPENTIN [Concomitant]
     Route: 048
  3. LEVONORGESTREL ETHINYL ESTRADIOL [Concomitant]
     Route: 048

REACTIONS (1)
  - Marrow hyperplasia [Not Recovered/Not Resolved]
